FAERS Safety Report 8937545 (Version 1)
Quarter: 2012Q4

REPORT INFORMATION
  Report Type: 
  Country: GB (occurrence: GB)
  Receive Date: 20121130
  Receipt Date: 20121130
  Transmission Date: 20130627
  Serious: Yes (Other)
  Sender: FDA-Public Use
  Company Number: GB-VERTEX PHARMACEUTICAL INC.-2012-022921

PATIENT

DRUGS (3)
  1. VX-950 (TELAPREVIR) [Suspect]
     Indication: HEPATITIS C
  2. RIBAVIRIN [Concomitant]
     Indication: HEPATITIS C
     Dosage: Dosage Form: Tablets
     Route: 048
  3. PEG INTERFERON [Concomitant]
     Indication: HEPATITIS C
     Dosage: Dosage Form: Injection
     Route: 058

REACTIONS (1)
  - Neutropenia [Unknown]
